FAERS Safety Report 8511040-5 (Version None)
Quarter: 2012Q3

REPORT INFORMATION
  Report Type: 
  Country: None (occurrence: None)
  Receive Date: 20120716
  Receipt Date: 20120702
  Transmission Date: 20120928
  Serious: Yes (Death, Hospitalization)
  Sender: FDA-Public Use
  Company Number: FR-BAYER-2012-066241

PATIENT
  Age: 57 Year
  Sex: Male

DRUGS (4)
  1. IXEL [Concomitant]
     Dosage: UNK
     Dates: start: 20091204, end: 20091229
  2. SORAFENIB (RAF KINASE INHIBITOR) [Suspect]
     Indication: HEPATIC NEOPLASM MALIGNANT
     Dosage: UNK
     Route: 048
     Dates: start: 20091208, end: 20091228
  3. PLACEBO [Suspect]
     Indication: HEPATIC NEOPLASM MALIGNANT
     Route: 048
  4. OXAZEPAM [Concomitant]
     Dosage: UNK
     Dates: start: 20091204, end: 20091229

REACTIONS (2)
  - HEPATIC ENCEPHALOPATHY [None]
  - HEPATIC FUNCTION ABNORMAL [None]
